FAERS Safety Report 7746227-2 (Version None)
Quarter: 2011Q3

REPORT INFORMATION
  Report Type: 
  Country: None (occurrence: None)
  Receive Date: 20110825
  Receipt Date: 20110524
  Transmission Date: 20111222
  Serious: No
  Sender: FDA-Public Use
  Company Number: 329282

PATIENT
  Age: 77 Year
  Sex: Male

DRUGS (4)
  1. VICTOZA [Suspect]
     Indication: TYPE 2 DIABETES MELLITUS
     Dosage: 1.8 MG, QD, SUBCUTANEOUS ; 0.6 MG, QD, SUBCUTANEOUS ; 1.2 MG, QD, SUBCUTANEOUS
     Route: 058
     Dates: start: 20110523
  2. VICTOZA [Suspect]
     Indication: WEIGHT CONTROL
     Dosage: 1.8 MG, QD, SUBCUTANEOUS ; 0.6 MG, QD, SUBCUTANEOUS ; 1.2 MG, QD, SUBCUTANEOUS
     Route: 058
     Dates: start: 20110523
  3. VICTOZA [Suspect]
     Indication: TYPE 2 DIABETES MELLITUS
     Dosage: 1.8 MG, QD, SUBCUTANEOUS ; 0.6 MG, QD, SUBCUTANEOUS ; 1.2 MG, QD, SUBCUTANEOUS
     Route: 058
     Dates: start: 20110501
  4. VICTOZA [Suspect]
     Indication: WEIGHT CONTROL
     Dosage: 1.8 MG, QD, SUBCUTANEOUS ; 0.6 MG, QD, SUBCUTANEOUS ; 1.2 MG, QD, SUBCUTANEOUS
     Route: 058
     Dates: start: 20110501

REACTIONS (4)
  - CONSTIPATION [None]
  - DECREASED APPETITE [None]
  - WEIGHT DECREASED [None]
  - ABDOMINAL PAIN UPPER [None]
